FAERS Safety Report 4675621-1 (Version None)
Quarter: 2005Q2

REPORT INFORMATION
  Report Type: 
  Country: None (occurrence: None)
  Receive Date: 20050525
  Receipt Date: 20050512
  Transmission Date: 20051028
  Serious: Yes (Death, Hospitalization, Disabling)
  Sender: FDA-Public Use
  Company Number: 2005-0008336

PATIENT
  Age: 36 Year
  Sex: Male

DRUGS (2)
  1. TENOFOVIR DISOPROXIL FUMARATE [Suspect]
     Indication: HIV INFECTION
  2. COMBIVIR [Suspect]
     Indication: HIV INFECTION

REACTIONS (4)
  - DYSPNOEA [None]
  - PERITONEAL DIALYSIS [None]
  - RED BLOOD CELL COUNT INCREASED [None]
  - RENAL FAILURE [None]
